FAERS Safety Report 25241299 (Version 2)
Quarter: 2025Q2

REPORT INFORMATION
  Report Type: Spontaneous
  Country: US (occurrence: US)
  Receive Date: 20250425
  Receipt Date: 20250430
  Transmission Date: 20250717
  Serious: Yes (Hospitalization, Other)
  Sender: MERCK SHARP & DOHME LLC
  Company Number: US-009507513-2278559

PATIENT
  Age: 85 Year
  Sex: Male

DRUGS (1)
  1. KEYTRUDA [Suspect]
     Active Substance: PEMBROLIZUMAB

REACTIONS (10)
  - Laryngectomy [Unknown]
  - Fall [Unknown]
  - Syncope [Unknown]
  - Pneumonitis [Unknown]
  - Haematochezia [Unknown]
  - Pulmonary congestion [Not Recovered/Not Resolved]
  - Colitis [Not Recovered/Not Resolved]
  - Hospitalisation [Unknown]
  - Infection [Unknown]
  - Diarrhoea [Unknown]
